FAERS Safety Report 8254879-6 (Version None)
Quarter: 2012Q1

REPORT INFORMATION
  Report Type: 
  Country: None (occurrence: None)
  Receive Date: 20120322
  Receipt Date: 20120113
  Transmission Date: 20120608
  Serious: Yes (Hospitalization)
  Sender: FDA-Public Use
  Company Number: UTC-014666

PATIENT
  Age: 55 Year
  Sex: Female
  Weight: 100.4 kg

DRUGS (3)
  1. TRACLEER [Concomitant]
  2. TYVASO [Suspect]
     Indication: PULMONARY HYPERTENSION
     Dosage: 18-54 MICROGRAMS (4 IN 1 D), INHALATION
     Route: 055
     Dates: start: 20110202
  3. DIURETICS (DIURETICS) [Concomitant]

REACTIONS (4)
  - TREATMENT NONCOMPLIANCE [None]
  - BRONCHITIS [None]
  - HEADACHE [None]
  - CHEST PAIN [None]
